FAERS Safety Report 4317596-0 (Version None)
Quarter: 2004Q1

REPORT INFORMATION
  Report Type: 
  Country: None (occurrence: None)
  Receive Date: 20040305
  Receipt Date: 20031204
  Transmission Date: 20041129
  Serious: Yes (Hospitalization)
  Sender: FDA-Public Use
  Company Number: US-SHR-03-018245

PATIENT
  Age: 62 Year
  Sex: Male

DRUGS (3)
  1. CAMPATH [Suspect]
     Indication: CHRONIC LYMPHOCYTIC LEUKAEMIA
     Dosage: 3/10/30 MG DOSE ESCALATION X 1WK; 30 MG/DAY M-W-F X 6 WK AND 1 DAY,  SUBCUTANEOUS
     Route: 058
     Dates: start: 20031001, end: 20031001
  2. CAMPATH [Suspect]
     Indication: CHRONIC LYMPHOCYTIC LEUKAEMIA
     Dosage: 3/10/30 MG DOSE ESCALATION X 1WK; 30 MG/DAY M-W-F X 6 WK AND 1 DAY,  SUBCUTANEOUS
     Route: 058
     Dates: start: 20031001, end: 20031101
  3. BACTRIM [Concomitant]

REACTIONS (1)
  - CYTOMEGALOVIRUS INFECTION [None]
